FAERS Safety Report 16481983 (Version 1)
Quarter: 2019Q2

REPORT INFORMATION
  Report Type: Spontaneous
  Country: GB (occurrence: GB)
  Receive Date: 20190627
  Receipt Date: 20190627
  Transmission Date: 20190711
  Serious: Yes (Other)
  Sender: FDA-Public Use
  Company Number: GB-SA-2019SA144407

PATIENT
  Age: 79 Year
  Sex: Female

DRUGS (7)
  1. COCODAMOL [Concomitant]
     Active Substance: ACETAMINOPHEN\CODEINE PHOSPHATE
     Indication: PAIN
     Dosage: UNK
  2. DISPERIN [ACETYLSALICYLIC ACID] [Concomitant]
     Indication: CARDIAC DISORDER
     Dosage: 75 MG
     Dates: start: 2011
  3. CARDIDE SR [Concomitant]
     Indication: BLOOD PRESSURE MEASUREMENT
     Dosage: 1-5 MG
     Dates: start: 2011
  4. PRALUENT [Suspect]
     Active Substance: ALIROCUMAB
     Indication: HYPERCHOLESTEROLAEMIA
     Dosage: 75 MG, QOW
     Dates: start: 201811, end: 20190430
  5. ROSUVASTATIN. [Suspect]
     Active Substance: ROSUVASTATIN
     Indication: BLOOD CHOLESTEROL
     Dosage: 20 MG
     Dates: start: 1992
  6. DISPERIN [ACETYLSALICYLIC ACID] [Concomitant]
     Indication: ANTICOAGULANT THERAPY
  7. EZETIMIBE. [Suspect]
     Active Substance: EZETIMIBE
     Indication: BLOOD CHOLESTEROL
     Dosage: 10 MG
     Dates: start: 1992

REACTIONS (4)
  - Lethargy [Recovered/Resolved]
  - Gastric ulcer [Recovered/Resolved]
  - Insomnia [Recovered/Resolved]
  - Depression [Recovered/Resolved]

NARRATIVE: CASE EVENT DATE: 201904
